FAERS Safety Report 9455671 (Version 1)
Quarter: 2013Q3

REPORT INFORMATION
  Report Type: Spontaneous
  Country: FR (occurrence: FR)
  Receive Date: 20130813
  Receipt Date: 20130813
  Transmission Date: 20140515
  Serious: Yes (Hospitalization)
  Sender: FDA-Public Use
  Company Number: FR-PFIZER INC-2013229796

PATIENT
  Age: 61 Year
  Sex: Male

DRUGS (6)
  1. SOLU-MEDROL [Suspect]
     Indication: PREMEDICATION
     Dosage: 120 MG, 1X/DAY
     Route: 042
     Dates: start: 20130604, end: 20130604
  2. ERBITUX [Suspect]
     Dosage: 820 MG, 1X/DAY
     Route: 042
     Dates: start: 20130604, end: 20130604
  3. AZANTAC [Suspect]
     Indication: PREMEDICATION
     Dosage: 50 MG, 1X/DAY
     Route: 042
     Dates: start: 20100604, end: 20130604
  4. POLARAMINE [Suspect]
     Indication: PREMEDICATION
     Dosage: 5 MG, 1X/DAY
     Route: 042
     Dates: start: 20130604, end: 20130604
  5. AMLODIPINE [Concomitant]
  6. FENOFIBRATE [Concomitant]

REACTIONS (5)
  - Rash [Recovered/Resolved]
  - Blood pressure decreased [Recovered/Resolved]
  - Sense of oppression [Recovered/Resolved]
  - Oxygen saturation decreased [Recovered/Resolved]
  - Laryngeal disorder [Recovered/Resolved]
